FAERS Safety Report 8386287-1 (Version None)
Quarter: 2012Q2

REPORT INFORMATION
  Report Type: 
  Country: None (occurrence: None)
  Receive Date: 20120525
  Receipt Date: 20120511
  Transmission Date: 20120825
  Serious: Yes (Death, Other)
  Sender: FDA-Public Use
  Company Number: DE-RANBAXY-2011RR-47380

PATIENT
  Age: 38 Year
  Sex: Female

DRUGS (1)
  1. TOPIRAMATE [Suspect]
     Indication: MIGRAINE
     Dosage: 25 MG/DAY
     Route: 065

REACTIONS (6)
  - CILIARY BODY DISORDER [None]
  - IRIS DISORDER [None]
  - CHOROIDAL EFFUSION [None]
  - CHOROIDAL DETACHMENT [None]
  - BLINDNESS [None]
  - FLAT ANTERIOR CHAMBER OF EYE [None]
